FAERS Safety Report 4807417-1 (Version None)
Quarter: 2005Q4

REPORT INFORMATION
  Report Type: 
  Country: None (occurrence: None)
  Receive Date: 20051020
  Receipt Date: 20051010
  Transmission Date: 20060501
  Serious: Yes (Hospitalization, Other)
  Sender: FDA-Public Use
  Company Number: 2005105318

PATIENT
  Age: 72 Year
  Sex: Female
  Weight: 72.5755 kg

DRUGS (7)
  1. FLAGYL [Suspect]
     Indication: INFECTION
     Dosage: (BID INTERVAL:  EVERY DAY), ORAL
     Route: 048
     Dates: start: 20020915
  2. FLAGYL [Suspect]
     Indication: LIVER DISORDER
     Dosage: (BID INTERVAL:  EVERY DAY), ORAL
     Route: 048
     Dates: start: 20020915
  3. AMITRIPTYLINE HCL [Concomitant]
  4. HYDROCHOLOROTHIAZIDE (HYDROCHOLOROTHIAZIDE) [Concomitant]
  5. ESTROPIPATE [Concomitant]
  6. DIAZEPAM [Concomitant]
  7. LEVOXYL [Concomitant]

REACTIONS (11)
  - DEPRESSION [None]
  - DIFFICULTY IN WALKING [None]
  - DIZZINESS [None]
  - FALL [None]
  - HYPOAESTHESIA [None]
  - INSOMNIA [None]
  - IRRITABILITY [None]
  - MEMORY IMPAIRMENT [None]
  - NEUROPATHY [None]
  - PAIN IN EXTREMITY [None]
  - WEIGHT DECREASED [None]
